FAERS Safety Report 5003757-4 (Version None)
Quarter: 2006Q1

REPORT INFORMATION
  Report Type: 
  Country: None (occurrence: None)
  Receive Date: 20060317
  Receipt Date: 20060130
  Transmission Date: 20060701
  Serious: Yes (Hospitalization)
  Sender: FDA-Public Use
  Company Number: US-JNJFOC-20060200062

PATIENT
  Age: 5 Decade
  Sex: Female

DRUGS (1)
  1. ORTHO EVRA [Suspect]
     Dosage: 1 DOSE (S), 3 IN 4 WEEK, TRANSDERMAL
     Route: 062

REACTIONS (2)
  - MENORRHAGIA [None]
  - PULMONARY EMBOLISM [None]
